FAERS Safety Report 20584640 (Version 1)
Quarter: 2022Q1

REPORT INFORMATION
  Report Type: Report from Study
  Country: GB (occurrence: GB)
  Receive Date: 20220311
  Receipt Date: 20220311
  Transmission Date: 20220423
  Serious: Yes (Other)
  Sender: FDA-Public Use
  Company Number: GB-TEVA-2022-GB-2015386

PATIENT
  Age: 56 Year
  Sex: Female

DRUGS (3)
  1. OCTREOTIDE [Suspect]
     Active Substance: OCTREOTIDE
     Dosage: LAST ADMINISTERED: 01-MAR-2022
     Route: 065
     Dates: start: 20220202
  2. VITAMIN B12 [Concomitant]
     Active Substance: CYANOCOBALAMIN
  3. loperimide [Concomitant]

REACTIONS (5)
  - Hypotension [Unknown]
  - Adverse drug reaction [Unknown]
  - Frequent bowel movements [Unknown]
  - Flushing [Unknown]
  - Dizziness [Unknown]

NARRATIVE: CASE EVENT DATE: 20220201
